FAERS Safety Report 8879302 (Version 2)
Quarter: 2012Q4

REPORT INFORMATION
  Report Type: 
  Country: US (occurrence: US)
  Receive Date: 20121031
  Receipt Date: 20121120
  Transmission Date: 20130627
  Serious: Yes (Death, Hospitalization)
  Sender: FDA-Public Use
  Company Number: US-ACTELION-A-NJ2012-70735

PATIENT
  Age: 55 Year
  Sex: Female

DRUGS (2)
  1. VELETRI [Suspect]
     Indication: PULMONARY ARTERIAL HYPERTENSION
     Dosage: 11 ng/kg, per min
     Route: 041
     Dates: start: 20120730
  2. PLAVIX [Concomitant]

REACTIONS (14)
  - Death [Fatal]
  - Oedema [Unknown]
  - Nausea [Unknown]
  - Vomiting [Unknown]
  - Headache [Recovered/Resolved]
  - Device malfunction [Recovering/Resolving]
  - Abdominal discomfort [Unknown]
  - Flushing [Unknown]
  - Pain in jaw [Recovering/Resolving]
  - Catheter site pruritus [Recovering/Resolving]
  - Catheter site erythema [Recovering/Resolving]
  - Infusion site pain [Recovering/Resolving]
  - Catheter site discharge [Recovering/Resolving]
  - Catheter site rash [Recovering/Resolving]
